FAERS Safety Report 11575800 (Version 2)
Quarter: 2015Q4

REPORT INFORMATION
  Report Type: Spontaneous
  Country: JP (occurrence: JP)
  Receive Date: 20150930
  Receipt Date: 20151105
  Transmission Date: 20160304
  Serious: Yes (Other)
  Sender: FDA-Public Use
  Company Number: JP-BRISTOL-MYERS SQUIBB COMPANY-BMS-2015-066433

PATIENT
  Age: 4 Decade
  Sex: Female

DRUGS (5)
  1. BROTIZOLAM [Suspect]
     Active Substance: BROTIZOLAM
     Indication: DYSTHYMIC DISORDER
     Route: 048
  2. SEDES G [Concomitant]
     Indication: HEADACHE
     Route: 065
  3. ABILIFY [Suspect]
     Active Substance: ARIPIPRAZOLE
     Indication: DYSTHYMIC DISORDER
     Route: 048
  4. PARACETAMOL [Suspect]
     Active Substance: ACETAMINOPHEN
     Indication: HEADACHE
     Route: 048
  5. PAROXETINE HYDROCHLORIDE HEMIHYDRATE. [Suspect]
     Active Substance: PAROXETINE HYDROCHLORIDE HEMIHYDRATE
     Indication: DYSTHYMIC DISORDER
     Route: 048

REACTIONS (2)
  - Tubulointerstitial nephritis [Not Recovered/Not Resolved]
  - Off label use [Unknown]
